FAERS Safety Report 20795722 (Version 3)
Quarter: 2022Q3

REPORT INFORMATION
  Report Type: Spontaneous
  Country: US (occurrence: US)
  Receive Date: 20220506
  Receipt Date: 20220728
  Transmission Date: 20221026
  Serious: Yes (Other)
  Sender: FDA-Public Use
  Company Number: US-PFIZER INC-202200545305

PATIENT
  Age: 75 Year
  Sex: Female

DRUGS (1)
  1. PREMPRO [Suspect]
     Active Substance: ESTROGENS, CONJUGATED\MEDROXYPROGESTERONE ACETATE
     Dosage: UNK

REACTIONS (7)
  - Drug dependence [Unknown]
  - Malaise [Unknown]
  - Cerebral disorder [Unknown]
  - COVID-19 [Unknown]
  - Hyperhidrosis [Unknown]
  - Insomnia [Unknown]
  - Allergy to animal [Unknown]

NARRATIVE: CASE EVENT DATE: 20220301
